FAERS Safety Report 20369077 (Version 1)
Quarter: 2022Q1

REPORT INFORMATION
  Report Type: Spontaneous
  Country: US (occurrence: None)
  Receive Date: 20220121
  Receipt Date: 20220121
  Transmission Date: 20220424
  Serious: Yes (Hospitalization)
  Sender: FDA-Public Use
  Company Number: None

PATIENT
  Age: 71 Year
  Sex: Female

DRUGS (22)
  1. BAMLANIVIMAB\ETESEVIMAB [Suspect]
     Active Substance: BAMLANIVIMAB\ETESEVIMAB
     Indication: COVID-19
     Dosage: FREQUENCY : ONCE;?
     Route: 042
     Dates: start: 20220105, end: 20220105
  2. albuterol HFA 90 mcg/actuation inhaler [Concomitant]
  3. allopurinol (ZYLOPRIM) [Concomitant]
  4. atorvastatin (LIPITOR) [Concomitant]
  5. azithromycin (ZITHROMAX) [Concomitant]
  6. cholecalciferol (Vitamin D3) [Concomitant]
  7. dexAMETHasone (DECADRON) [Concomitant]
  8. furosemide (LASIX) [Concomitant]
  9. ipratropium-albuteroL (Combivent Respimat) [Concomitant]
  10. metoprolol tartrate (LOPRESSOR) [Concomitant]
  11. pantoprazole (Protonix) [Concomitant]
  12. rOPINIRole (REQUIP) [Concomitant]
  13. ZOLOFT [Concomitant]
     Active Substance: SERTRALINE HYDROCHLORIDE
  14. warfarin (COUMADIN) [Concomitant]
  15. zinc sulfate (ZINCATE) [Concomitant]
  16. amLODIPine (NORVASC) [Concomitant]
  17. ascorbic acid (VITAMIN C ORAL) [Concomitant]
  18. calcitriol (ROCALTROL) [Concomitant]
  19. insulin glargine (LANTUS) [Concomitant]
  20. HUMALOG [Concomitant]
     Active Substance: INSULIN LISPRO
  21. MELATONIN [Concomitant]
  22. ondansetron HCL (ZOFRAN) [Concomitant]

REACTIONS (22)
  - Pneumonia [None]
  - Mental status changes [None]
  - Syncope [None]
  - Muscle twitching [None]
  - Rheumatic disorder [None]
  - Dyskinesia [None]
  - COVID-19 [None]
  - Eye movement disorder [None]
  - Seizure like phenomena [None]
  - Brain oedema [None]
  - Electrolyte imbalance [None]
  - Pleural effusion [None]
  - Pneumonia bacterial [None]
  - Hypervolaemia [None]
  - Magnetic resonance imaging head abnormal [None]
  - Drug eruption [None]
  - Gastrointestinal haemorrhage [None]
  - Anaemia [None]
  - End stage renal disease [None]
  - Hypertension [None]
  - Atrial fibrillation [None]
  - Superior semicircular canal dehiscence [None]

NARRATIVE: CASE EVENT DATE: 20220116
